FAERS Safety Report 9797750 (Version 2)
Quarter: 2014Q1

REPORT INFORMATION
  Report Type: Spontaneous
  Country: US (occurrence: US)
  Receive Date: 20140106
  Receipt Date: 20140106
  Transmission Date: 20141002
  Serious: Yes (Hospitalization, Other)
  Sender: FDA-Public Use
  Company Number: US-JNJFOC-20131105233

PATIENT
  Sex: Male
  Weight: 103.42 kg

DRUGS (3)
  1. RISPERDAL [Suspect]
     Indication: OBSESSIVE-COMPULSIVE DISORDER
     Dosage: 2 MG AT NIGHT??MARCH OR APRIL
     Route: 048
     Dates: start: 2000, end: 2006
  2. DEPAKOTE [Concomitant]
     Indication: SCHIZOPHRENIA
     Route: 065
     Dates: start: 1983, end: 2000
  3. XANAX [Concomitant]
     Indication: ANXIETY
     Route: 065
     Dates: start: 2000

REACTIONS (12)
  - Type 2 diabetes mellitus [Recovered/Resolved]
  - Weight increased [Recovered/Resolved]
  - Androgens abnormal [Recovering/Resolving]
  - Gynaecomastia [Recovered/Resolved]
  - Expired drug administered [Unknown]
  - Off label use [Recovered/Resolved]
  - Hunger [Recovered/Resolved]
  - Fluid retention [Recovered/Resolved]
  - Dehydration [Recovered/Resolved]
  - Prostate infection [Recovered/Resolved]
  - Blood glucose decreased [Recovered/Resolved]
  - Anxiety [Recovered/Resolved]
